FAERS Safety Report 5188225-1 (Version None)
Quarter: 2006Q4

REPORT INFORMATION
  Report Type: 
  Country: None (occurrence: None)
  Receive Date: 20061214
  Receipt Date: 20061212
  Transmission Date: 20070319
  Serious: Yes (Death, Hospitalization)
  Sender: FDA-Public Use
  Company Number: THQ2006A01140

PATIENT
  Age: 71 Year
  Sex: Male

DRUGS (14)
  1. LUCRIN TRIDEPOT (LEUPROLIDE ACETATE) (INJECTION) [Suspect]
     Indication: PROSTATE CANCER
     Dates: start: 20050525, end: 20051207
  2. ZOLEDRONIC ACID [Concomitant]
  3. CALCIIUM [Concomitant]
  4. ERGOCALCIFEROL [Concomitant]
  5. HYDROMORPHONE HYDROCHLORIDE [Concomitant]
  6. NIMESULIDE [Concomitant]
  7. ASPIRIN [Concomitant]
  8. BISOPROLOL FUMARATE [Concomitant]
  9. OMEPRAZOLE [Concomitant]
  10. PIROXICAM [Concomitant]
  11. AMITRIPTYLINE HYDROCHLORIDE [Concomitant]
  12. MORPHINE TEVA [Concomitant]
  13. MS DIRECT [Concomitant]
  14. BICALUTAMIDE [Concomitant]

REACTIONS (7)
  - ASTHENIA [None]
  - DECREASED APPETITE [None]
  - GENERAL PHYSICAL HEALTH DETERIORATION [None]
  - INADEQUATE ANALGESIA [None]
  - NAUSEA [None]
  - PROSTATIC SPECIFIC ANTIGEN INCREASED [None]
  - VOMITING [None]
